FAERS Safety Report 5259848-6 (Version None)
Quarter: 2007Q1

REPORT INFORMATION
  Report Type: 
  Country: None (occurrence: None)
  Receive Date: 20070309
  Receipt Date: 20070306
  Transmission Date: 20070707
  Serious: Yes (Other)
  Sender: FDA-Public Use
  Company Number: ZA-AVENTIS-200622621GDDC

PATIENT
  Age: 64 Year
  Sex: Female

DRUGS (7)
  1. ARAVA [Suspect]
     Indication: RHEUMATOID ARTHRITIS
     Route: 048
     Dates: start: 20051111, end: 20061122
  2. METHOTREXATE [Concomitant]
     Indication: RHEUMATOID ARTHRITIS
     Route: 048
     Dates: start: 20051111
  3. ACTIVELLE [Concomitant]
     Indication: MENOPAUSE
     Dosage: DOSE: 1 DOSE
     Route: 048
     Dates: start: 20051111
  4. DYNACIRC [Concomitant]
     Indication: HYPERTENSION
     Route: 048
     Dates: start: 20051117
  5. FOLIC ACID [Concomitant]
     Indication: RHEUMATOID ARTHRITIS
     Route: 048
     Dates: start: 20051111
  6. CELEBREX [Concomitant]
     Indication: RHEUMATOID ARTHRITIS
     Route: 048
     Dates: start: 20051111
  7. NEXIAM                             /01479301/ [Concomitant]
     Route: 048
     Dates: start: 20051111

REACTIONS (3)
  - ANAEMIA MEGALOBLASTIC [None]
  - MYCOBACTERIAL INFECTION [None]
  - MYELOFIBROSIS [None]
